FAERS Safety Report 7945688-3 (Version None)
Quarter: 2011Q4

REPORT INFORMATION
  Report Type: 
  Country: None (occurrence: None)
  Receive Date: 20111129
  Receipt Date: 20111123
  Transmission Date: 20120403
  Serious: Yes (Death, Hospitalization, Other)
  Sender: FDA-Public Use
  Company Number: US-PFIZER INC-2008064264

PATIENT
  Sex: Male
  Weight: 85.73 kg

DRUGS (19)
  1. LYRICA [Suspect]
     Dosage: 150 MG, 2X/DAY
     Dates: start: 20080101
  2. PERSANTINE [Concomitant]
     Indication: HYPERTENSION
     Dosage: UNK
  3. LOSARTAN POTASSIUM [Concomitant]
     Dosage: UNK
  4. NITROGLYCERIN [Concomitant]
     Indication: CHEST PAIN
     Dosage: 0.4 MG, 1X/DAY
     Route: 062
  5. NITROGLYCERIN [Concomitant]
     Dosage: UNK, AS NEEDED
  6. ZANTAC [Concomitant]
     Dosage: UNK
  7. ASPIRIN [Concomitant]
     Dosage: 325 MG, DAILY
  8. PEPCID [Concomitant]
     Dosage: UNK
  9. ATENOLOL [Concomitant]
     Dosage: 25 MG, 2X/DAY
  10. TERAZOSIN HCL [Concomitant]
     Indication: PROSTATOMEGALY
     Dosage: 1 MG, 1X/DAY
  11. PREDNISONE [Concomitant]
     Dosage: UNK,2 TIMES A DAY IN EACH EYE
  12. AMLODIPINE BESYLATE [Concomitant]
     Indication: HYPERTENSION
     Dosage: UNK
  13. ALBUTEROL [Concomitant]
     Dosage: UNK
     Route: 055
  14. GLYBURIDE [Concomitant]
     Indication: DIABETES MELLITUS
     Dosage: 10 MG, 2X/DAY
  15. MOMETASONE FUROATE [Concomitant]
     Dosage: 220 UG, 2 PUFFS A DAY
     Route: 055
  16. FORMOTEROL FUMARATE [Concomitant]
     Dosage: 12 UG, 1 PUFF TWO TIMES A DAY
     Route: 055
  17. CENTRUM [Concomitant]
     Dosage: UNK
  18. ARICEPT [Suspect]
     Dosage: 5 MG, UNK
     Dates: start: 20080701
  19. VICODIN [Concomitant]
     Dosage: UNK

REACTIONS (3)
  - DEMENTIA [None]
  - THROMBOSIS [None]
  - DEATH [None]
